FAERS Safety Report 13825433 (Version 1)
Quarter: 2017Q3

REPORT INFORMATION
  Report Type: Spontaneous
  Country: US (occurrence: US)
  Receive Date: 20170802
  Receipt Date: 20170802
  Transmission Date: 20171127
  Serious: Yes (Other)
  Sender: FDA-Public Use
  Company Number: US-BAYER-2017-146577

PATIENT
  Sex: Female

DRUGS (1)
  1. SKYLA [Suspect]
     Active Substance: LEVONORGESTREL
     Indication: CONTRACEPTION
     Dosage: 14 MCG/24HR, CONT
     Route: 015
     Dates: start: 20170127

REACTIONS (4)
  - Genital haemorrhage [None]
  - Medical device discomfort [None]
  - Contraindicated device used [None]
  - Medical device monitoring error [None]

NARRATIVE: CASE EVENT DATE: 2017
